FAERS Safety Report 7584494-9 (Version None)
Quarter: 2011Q2

REPORT INFORMATION
  Report Type: 
  Country: None (occurrence: None)
  Receive Date: 20110630
  Receipt Date: 20110629
  Transmission Date: 20111010
  Serious: Yes (Other)
  Sender: FDA-Public Use
  Company Number: US-BRISTOL-MYERS SQUIBB COMPANY-15863418

PATIENT
  Age: 60 Year
  Sex: Male

DRUGS (1)
  1. YERVOY [Suspect]
     Dosage: FIRST DOSE
     Dates: start: 20110617

REACTIONS (2)
  - COUGH [None]
  - HAEMATEMESIS [None]
